FAERS Safety Report 8843854 (Version 1)
Quarter: 2012Q4

REPORT INFORMATION
  Report Type: 
  Country: US (occurrence: US)
  Receive Date: 20121016
  Receipt Date: 20121016
  Transmission Date: 20130627
  Serious: No
  Sender: FDA-Public Use
  Company Number: US-PFIZER INC-2012253958

PATIENT
  Age: 72 Year
  Sex: Male
  Weight: 92.1 kg

DRUGS (3)
  1. TIKOSYN [Suspect]
     Indication: HEART RATE IRREGULAR
     Dosage: 125 ug, 2x/day
     Dates: start: 20120807
  2. COZAAR [Concomitant]
     Indication: HYPERTENSION
     Dosage: 100 mg, daily
  3. METOPROLOL [Concomitant]
     Indication: HYPERTENSION
     Dosage: 100 mg, daily

REACTIONS (1)
  - Neuropathy peripheral [Not Recovered/Not Resolved]
